FAERS Safety Report 16777933 (Version 1)
Quarter: 2019Q3

REPORT INFORMATION
  Report Type: Spontaneous
  Country: JP (occurrence: JP)
  Receive Date: 20190905
  Receipt Date: 20190905
  Transmission Date: 20191005
  Serious: No
  Sender: FDA-Public Use
  Company Number: JP-ELI_LILLY_AND_COMPANY-JP201909000113

PATIENT
  Age: 76 Year
  Sex: Female

DRUGS (2)
  1. DULOXETINE HYDROCHLORIDE. [Suspect]
     Active Substance: DULOXETINE HYDROCHLORIDE
     Indication: BACK PAIN
     Dosage: 60 MG, DAILY
     Route: 048
     Dates: start: 201904, end: 201908
  2. DULOXETINE HYDROCHLORIDE. [Suspect]
     Active Substance: DULOXETINE HYDROCHLORIDE
     Indication: OSTEOARTHRITIS
     Dosage: 40 MG, DAILY
     Route: 048
     Dates: start: 201810, end: 201904

REACTIONS (2)
  - Hepatic function abnormal [Unknown]
  - Constipation [Unknown]

NARRATIVE: CASE EVENT DATE: 201908
